FAERS Safety Report 4775333-X (Version None)
Quarter: 2005Q3

REPORT INFORMATION
  Report Type: 
  Country: None (occurrence: None)
  Receive Date: 20050922
  Receipt Date: 20050912
  Transmission Date: 20060218
  Serious: Yes (Other)
  Sender: FDA-Public Use
  Company Number: GB-BOEHRINGER INGELHEIM PHARMACEUTICALS, INC.-2005-BP-16688YA

PATIENT
  Age: 71 Year
  Sex: Male

DRUGS (2)
  1. FLOMAX [Suspect]
     Indication: PROSTATISM
     Route: 048
     Dates: start: 20041101, end: 20050813
  2. DUTASTERIDE [Concomitant]
     Indication: PROSTATISM
     Route: 048
     Dates: start: 20041101, end: 20050801

REACTIONS (5)
  - ARTHRALGIA [None]
  - MYALGIA [None]
  - MYOSITIS [None]
  - PAIN IN EXTREMITY [None]
  - THROMBOCYTOPENIA [None]
